FAERS Safety Report 6520629-4 (Version None)
Quarter: 2009Q4

REPORT INFORMATION
  Report Type: 
  Country: None (occurrence: None)
  Receive Date: 20091229
  Receipt Date: 20091221
  Transmission Date: 20100525
  Serious: Yes (Life-Threatening, Other)
  Sender: FDA-Public Use
  Company Number: US-BAYER-200917750BCC

PATIENT
  Age: 48 Year
  Sex: Female

DRUGS (1)
  1. ASPIRIN [Suspect]
     Indication: HIP ARTHROPLASTY
     Route: 065
     Dates: start: 19950101

REACTIONS (1)
  - DRUG HYPERSENSITIVITY [None]
